FAERS Safety Report 7426584-7 (Version None)
Quarter: 2011Q2

REPORT INFORMATION
  Report Type: 
  Country: None (occurrence: None)
  Receive Date: 20110420
  Receipt Date: 20110405
  Transmission Date: 20111010
  Serious: Yes (Hospitalization, Other)
  Sender: FDA-Public Use
  Company Number: ES-CELGENEUS-144-21880-10062169

PATIENT
  Sex: Female
  Weight: 60 kg

DRUGS (7)
  1. REVLIMID [Suspect]
     Dosage: 10 MILLIGRAM
     Route: 048
     Dates: start: 20080806
  2. STEROIDS [Concomitant]
     Indication: ADRENAL INSUFFICIENCY
     Route: 065
  3. DEXAMETHASONE [Concomitant]
     Indication: MULTIPLE MYELOMA
     Dosage: 40 MILLIGRAM
     Route: 065
     Dates: start: 20080101
  4. REVLIMID [Suspect]
     Indication: MULTIPLE MYELOMA
     Dosage: 25 MILLIGRAM
     Route: 048
     Dates: start: 20080108, end: 20080304
  5. LOW MOLECULAR WEIGHT HEPARIN [Concomitant]
     Indication: PROPHYLAXIS
     Route: 065
  6. FILGRASTIM [Concomitant]
     Indication: PROPHYLAXIS
     Route: 065
  7. REVLIMID [Suspect]
     Dosage: 15 MILLIGRAM
     Route: 048
     Dates: start: 20080304, end: 20080730

REACTIONS (2)
  - FEBRILE NEUTROPENIA [None]
  - ADRENAL INSUFFICIENCY [None]
